FAERS Safety Report 5752694-6 (Version None)
Quarter: 2008Q2

REPORT INFORMATION
  Report Type: 
  Country: None (occurrence: None)
  Receive Date: 20080527
  Receipt Date: 20080527
  Transmission Date: 20081010
  Serious: Yes (Life-Threatening, Hospitalization, Other)
  Sender: FDA-Public Use
  Company Number: None

PATIENT
  Age: 27 Year
  Sex: Female
  Weight: 68.0396 kg

DRUGS (1)
  1. ORTHO EVRA [Suspect]
     Indication: CONTRACEPTION
     Dosage: 3 PATCHES  1 PER WEEK OFF 4TH  TRANSDERMAL
     Route: 062
     Dates: start: 20030701, end: 20051212

REACTIONS (9)
  - FIBRIN D DIMER INCREASED [None]
  - HEADACHE [None]
  - HEPATIC CYST [None]
  - LIVER FUNCTION TEST ABNORMAL [None]
  - PLATELET COUNT DECREASED [None]
  - PNEUMONIA [None]
  - PYREXIA [None]
  - SEPSIS SYNDROME [None]
  - STREPTOCOCCAL INFECTION [None]
